FAERS Safety Report 18607639 (Version 1)
Quarter: 2020Q4

REPORT INFORMATION
  Report Type: Spontaneous
  Country: US (occurrence: US)
  Receive Date: 20201211
  Receipt Date: 20201211
  Transmission Date: 20210114
  Serious: Yes (Other)
  Sender: FDA-Public Use
  Company Number: US-ELI_LILLY_AND_COMPANY-US202012001124

PATIENT
  Sex: Female
  Weight: 72.6 kg

DRUGS (11)
  1. BAMLANIVIMAB 700MG [Suspect]
     Active Substance: BAMLANIVIMAB
     Indication: COVID-19
     Dosage: 700 MG, SINGLE
     Route: 042
     Dates: start: 20201125, end: 20201125
  2. DENOSUMAB [Concomitant]
     Active Substance: DENOSUMAB
  3. HYDROXYCHLOROQUINE [Concomitant]
     Active Substance: HYDROXYCHLOROQUINE
  4. PRAVASTATIN. [Concomitant]
     Active Substance: PRAVASTATIN
  5. MORPHINE [Concomitant]
     Active Substance: MORPHINE
  6. CEVIMELINE. [Concomitant]
     Active Substance: CEVIMELINE
  7. TRAZODONE [Concomitant]
     Active Substance: TRAZODONE HYDROCHLORIDE
  8. ACEBUTOLOL [Concomitant]
     Active Substance: ACEBUTOLOL
  9. CYCLOBENZAPRINE. [Concomitant]
     Active Substance: CYCLOBENZAPRINE
  10. DULOXETINE. [Concomitant]
     Active Substance: DULOXETINE
  11. LEVOTHYROXINE. [Concomitant]
     Active Substance: LEVOTHYROXINE

REACTIONS (3)
  - Tachycardia [Recovered/Resolved]
  - Atrial fibrillation [Recovered/Resolved]
  - Atrial flutter [Recovered/Resolved]
